FAERS Safety Report 7179576-X (Version None)
Quarter: 2010Q4

REPORT INFORMATION
  Report Type: 
  Country: None (occurrence: None)
  Receive Date: 20101221
  Receipt Date: 20100305
  Transmission Date: 20110411
  Serious: Yes (Other)
  Sender: FDA-Public Use
  Company Number: PL-ROCHE-689272

PATIENT
  Age: 44 Year
  Sex: Male

DRUGS (1)
  1. BONIVA [Suspect]
     Indication: BONE DISORDER
     Route: 065
     Dates: start: 20100301

REACTIONS (3)
  - BACK PAIN [None]
  - MUSCULOSKELETAL CHEST PAIN [None]
  - OBSTRUCTIVE AIRWAYS DISORDER [None]
